FAERS Safety Report 11480718 (Version 5)
Quarter: 2018Q1

REPORT INFORMATION
  Report Type: Report from Study
  Country: JP (occurrence: JP)
  Receive Date: 20150909
  Receipt Date: 20180313
  Transmission Date: 20180508
  Serious: Yes (Other)
  Sender: FDA-Public Use
  Company Number: JP-BRISTOL-MYERS SQUIBB COMPANY-BMS-2015-040070

PATIENT
  Age: 71 Year
  Sex: Female

DRUGS (2)
  1. NIVOLUMAB [Suspect]
     Active Substance: NIVOLUMAB
     Indication: MALIGNANT MELANOMA
     Dosage: 2 MG/KG, UNK
     Route: 041
     Dates: start: 20150414, end: 20160329
  2. DTIC                               /00372801/ [Suspect]
     Active Substance: DACARBAZINE CITRATE
     Indication: MALIGNANT MELANOMA
     Dosage: UNK
     Route: 065
     Dates: start: 201503

REACTIONS (9)
  - Leukoderma [Not Recovered/Not Resolved]
  - Diarrhoea [Recovered/Resolved]
  - Eye disorder [Not Recovered/Not Resolved]
  - Bone marrow failure [Unknown]
  - Somnolence [Unknown]
  - Iritis [Unknown]
  - Leukopenia [Recovered/Resolved]
  - Fatigue [Recovering/Resolving]
  - Malignant neoplasm progression [Unknown]

NARRATIVE: CASE EVENT DATE: 2015
